FAERS Safety Report 8871817 (Version 1)
Quarter: 2012Q4

REPORT INFORMATION
  Report Type: Spontaneous
  Country: US (occurrence: None)
  Receive Date: 20121026
  Receipt Date: 20121026
  Transmission Date: 20130627
  Serious: Yes (Hospitalization)
  Sender: FDA-Public Use
  Company Number: None

PATIENT
  Sex: Male
  Weight: 72 kg

DRUGS (2)
  1. CYTARABINE [Suspect]
     Dates: end: 20120924
  2. DAUNORUBICIN [Suspect]
     Dates: end: 20120920

REACTIONS (10)
  - Blood sodium decreased [None]
  - Hypotension [None]
  - Coronary artery occlusion [None]
  - Incision site haemorrhage [None]
  - Acute myocardial infarction [None]
  - Cardiogenic shock [None]
  - Arteriosclerosis coronary artery [None]
  - Hypertension [None]
  - Dyslipidaemia [None]
  - Lung adenocarcinoma stage II [None]
